FAERS Safety Report 5044250-2 (Version None)
Quarter: 2006Q2

REPORT INFORMATION
  Report Type: 
  Country: None (occurrence: None)
  Receive Date: 20060629
  Receipt Date: 20060614
  Transmission Date: 20061013
  Serious: Yes (Hospitalization, Other)
  Sender: FDA-Public Use
  Company Number: DE-2006-010593

PATIENT
  Age: 39 Year
  Sex: Female
  Weight: 76 kg

DRUGS (4)
  1. BETASERON [Suspect]
     Indication: MULTIPLE SCLEROSIS
     Dosage: 8 MIU,  EVERY 2D, SUBCUTANEOUS
     Route: 058
     Dates: start: 20050826, end: 20060503
  2. CORTISONE ACETATE [Concomitant]
  3. LEVOTHYROXINE SODIUM [Concomitant]
  4. PANTOPRAZOLE SODIUM [Concomitant]

REACTIONS (10)
  - C-REACTIVE PROTEIN INCREASED [None]
  - CHILLS [None]
  - ERYTHEMA [None]
  - FATIGUE [None]
  - HEART RATE INCREASED [None]
  - HEPATITIS [None]
  - OEDEMA PERIPHERAL [None]
  - POLYARTHRITIS [None]
  - PRODUCTIVE COUGH [None]
  - PYREXIA [None]
